FAERS Safety Report 18857949 (Version 1)
Quarter: 2021Q1

REPORT INFORMATION
  Report Type: Spontaneous
  Country: US (occurrence: US)
  Receive Date: 20210208
  Receipt Date: 20210208
  Transmission Date: 20210420
  Serious: Yes (Other)
  Sender: FDA-Public Use
  Company Number: US-TAKEDA-2021TUS006404

PATIENT
  Sex: Male
  Weight: 52.15 kg

DRUGS (13)
  1. AMLODIPINE [Concomitant]
     Active Substance: AMLODIPINE BESYLATE
  2. MYCOPHENOLATE [Concomitant]
     Active Substance: MYCOPHENOLIC ACID
  3. GAMMAGARD LIQUID [Suspect]
     Active Substance: HUMAN IMMUNOGLOBULIN G
     Indication: IMMUNODEFICIENCY COMMON VARIABLE
     Route: 065
  4. FAMOTIDINE. [Concomitant]
     Active Substance: FAMOTIDINE
  5. PREDNISOLONE. [Concomitant]
     Active Substance: PREDNISOLONE
  6. HIZENTRA [Concomitant]
     Active Substance: HUMAN IMMUNOGLOBULIN G
  7. EPINEPHRINE. [Concomitant]
     Active Substance: EPINEPHRINE
  8. TACROLIMUS. [Concomitant]
     Active Substance: TACROLIMUS
  9. MAGNESIUM [Concomitant]
     Active Substance: MAGNESIUM
  10. IRON [Concomitant]
     Active Substance: IRON
  11. BACTRIM [Concomitant]
     Active Substance: SULFAMETHOXAZOLE\TRIMETHOPRIM
  12. ZOFRAN [Concomitant]
     Active Substance: ONDANSETRON HYDROCHLORIDE
  13. MELATONIN [Concomitant]
     Active Substance: MELATONIN

REACTIONS (1)
  - Anaphylactic reaction [Unknown]
